FAERS Safety Report 10273387 (Version 1)
Quarter: 2014Q1

REPORT INFORMATION
  Report Type: Spontaneous
  Country: US (occurrence: None)
  Receive Date: 20140306
  Receipt Date: 20140306
  Transmission Date: 20141002
  Serious: Yes (Hospitalization, Other)
  Sender: FDA-Public Use
  Company Number: 163-21880-13021411

PATIENT
  Age: 66 Year
  Sex: Male
  Weight: 63.5 kg

DRUGS (22)
  1. REVLIMID (LENALIDOMIDE) (25 MILLIGRAM, CAPSULES) [Suspect]
     Indication: PLASMA CELL MYELOMA
     Dosage: 25 MG, 21 IN 28 D
     Route: 048
     Dates: start: 20130117
  2. CARDURA (DOXAZOSIN MESILATE) (TABLETS) [Concomitant]
  3. CRESTOR (ROSUVASTATIN) (TABLETS) [Concomitant]
  4. LYRICA (PREGABALIN) (CAPSULES) [Concomitant]
  5. OXYCODONE HCL (OXYCODONE HYDROCHLORIDE) (UNKNOWN) [Concomitant]
  6. OMEGA 3 (FISH OIL) (CAPSULES) [Concomitant]
  7. VITAMIN C (ASCORBIC ACID) (UNKNOWN) [Concomitant]
  8. VELCADE (BORTEZOMIB) (UNKNOWN) [Concomitant]
  9. ZOLPIDEM TARTRATE (ZOLPIDEM TARTRATE) (UNKNOWN) [Concomitant]
  10. CALCIUM ACETATE (UNKNOWN) [Concomitant]
  11. DEXAMETHASONE (UNKNOWN) [Concomitant]
  12. MEGESTROL ACETATE (UNKNOWN) [Concomitant]
  13. CARVEDILOL (UNKNOWN) [Concomitant]
  14. GABAPENTIN (UNKNOWN) [Concomitant]
  15. ASPIRIN (ACETYLSALICYLIC ACID) (TABLETS) [Concomitant]
  16. TAMSULOSIN HCL (TAMSULOSIN HYDROCHLORIDE) (UNKNOWN) [Concomitant]
  17. CO Q-10 (UBIDECARENSONE) (CAPSULES) [Concomitant]
  18. MIRTAZAPINE (UNKNOWN) [Concomitant]
  19. PAROXETINE (UNKNOWN) [Concomitant]
  20. METAMUCIL (ISPAGHULA) (UNKNOWN) [Concomitant]
  21. CYTRA-2 (SOLUTION) [Concomitant]
  22. RENAL (NEPHROVITE) (CAPSULES) [Concomitant]

REACTIONS (7)
  - Sepsis [None]
  - Renal failure [None]
  - Weight decreased [None]
  - Diarrhoea [None]
  - Headache [None]
  - Nausea [None]
  - Decreased appetite [None]
